FAERS Safety Report 15784578 (Version 1)
Quarter: 2019Q1

REPORT INFORMATION
  Report Type: Spontaneous
  Country: JP (occurrence: JP)
  Receive Date: 20190103
  Receipt Date: 20190103
  Transmission Date: 20190417
  Serious: Yes (Other)
  Sender: FDA-Public Use
  Company Number: JP-ALKEM LABORATORIES LIMITED-JP-ALKEM-2018-09233

PATIENT
  Age: 19 Year
  Sex: Female

DRUGS (3)
  1. SANDIMMUN [Suspect]
     Active Substance: CYCLOSPORINE
     Indication: STEM CELL TRANSPLANT
     Dosage: 65-150 MG
     Route: 042
     Dates: start: 20140924, end: 20141120
  2. SANDIMMUN [Suspect]
     Active Substance: CYCLOSPORINE
     Dosage: 45-70 MG DAILY
     Route: 042
     Dates: start: 20141121, end: 20141216
  3. MYCOPHENOLATE MOFETIL. [Suspect]
     Active Substance: MYCOPHENOLATE MOFETIL
     Indication: IMMUNOSUPPRESSANT DRUG THERAPY
     Dosage: UNKNOWN
     Route: 065

REACTIONS (1)
  - Cytomegalovirus gastrointestinal infection [Recovered/Resolved]

NARRATIVE: CASE EVENT DATE: 20141121
